FAERS Safety Report 6104490-8 (Version None)
Quarter: 2009Q1

REPORT INFORMATION
  Report Type: 
  Country: None (occurrence: None)
  Receive Date: 20090305
  Receipt Date: 20090226
  Transmission Date: 20090719
  Serious: Yes (Hospitalization)
  Sender: FDA-Public Use
  Company Number: JP-B.I. PHARMACEUTICALS,INC./RIDGEFIELD-2009-BP-01803NB

PATIENT
  Sex: Male
  Weight: 54.6 kg

DRUGS (6)
  1. BI-SIFROL TABLETS [Suspect]
     Indication: PARKINSON'S DISEASE
     Route: 048
     Dates: start: 20071026
  2. DOPACOL [Suspect]
     Indication: PARKINSON'S DISEASE
     Dosage: 600MG
     Route: 048
  3. DOPS [Suspect]
     Indication: PARKINSON'S DISEASE
     Dosage: 400MG
     Route: 048
  4. DAIO-KANZO-TO [Suspect]
     Indication: CONSTIPATION
     Dosage: 7.5G
     Route: 048
     Dates: end: 20081204
  5. POLARAMINE [Concomitant]
     Indication: PRURITUS
     Dosage: 2MG
     Route: 048
  6. HARNAL D [Concomitant]
     Indication: BENIGN PROSTATIC HYPERPLASIA
     Dosage: .2MG
     Route: 048

REACTIONS (5)
  - ANAEMIA HAEMOLYTIC AUTOIMMUNE [None]
  - DYSPHAGIA [None]
  - OEDEMA PERIPHERAL [None]
  - PARKINSON'S DISEASE [None]
  - PYREXIA [None]
